FAERS Safety Report 5052620-1 (Version None)
Quarter: 2006Q3

REPORT INFORMATION
  Report Type: 
  Country: None (occurrence: None)
  Receive Date: 20060717
  Receipt Date: 20060713
  Transmission Date: 20061208
  Serious: Yes (Hospitalization)
  Sender: FDA-Public Use
  Company Number: DE-GLAXOSMITHKLINE-D0050328A

PATIENT
  Age: 53 Year
  Sex: Female
  Weight: 45 kg

DRUGS (4)
  1. HYCAMTIN [Suspect]
     Dosage: 2.5MGM2 PER DAY
     Route: 042
     Dates: start: 20060501
  2. KALINOR [Concomitant]
     Route: 048
  3. SODIUM CHLORIDE [Concomitant]
     Route: 048
  4. ELECTROLYTES [Concomitant]
     Route: 042

REACTIONS (3)
  - HYPOKALAEMIA [None]
  - HYPONATRAEMIA [None]
  - RENAL SALT-WASTING SYNDROME [None]
